FAERS Safety Report 6608871-5 (Version None)
Quarter: 2010Q1

REPORT INFORMATION
  Report Type: 
  Country: None (occurrence: None)
  Receive Date: 20100225
  Receipt Date: 20100225
  Transmission Date: 20100710
  Serious: Yes (Life-Threatening, Other)
  Sender: FDA-Public Use
  Company Number: None

PATIENT
  Age: 59 Year
  Sex: Female
  Weight: 118.8424 kg

DRUGS (1)
  1. DEXAMETHASONE [Suspect]
     Indication: ARTHRALGIA
     Dosage: 4 MG/CC ONCE ONE INJECTION IN WRIST
     Dates: start: 20090904, end: 20090904

REACTIONS (22)
  - AGEUSIA [None]
  - ALOPECIA [None]
  - APTYALISM [None]
  - ARTHRALGIA [None]
  - ASTHENIA [None]
  - BLOOD GLUCOSE INCREASED [None]
  - CANDIDIASIS [None]
  - CATARACT [None]
  - DEHYDRATION [None]
  - DRUG INEFFECTIVE [None]
  - DRY MOUTH [None]
  - DRY SKIN [None]
  - DYSPHAGIA [None]
  - GLUCOSE TOLERANCE IMPAIRED [None]
  - GLYCOSYLATED HAEMOGLOBIN INCREASED [None]
  - MALAISE [None]
  - MUSCLE SPASMS [None]
  - OEDEMA MOUTH [None]
  - URINE OUTPUT INCREASED [None]
  - VAGINAL HAEMORRHAGE [None]
  - VISUAL IMPAIRMENT [None]
  - WEIGHT DECREASED [None]
